FAERS Safety Report 23686829 (Version 1)
Quarter: 2024Q1

REPORT INFORMATION
  Report Type: Spontaneous
  Country: US (occurrence: US)
  Receive Date: 20240329
  Receipt Date: 20240329
  Transmission Date: 20240410
  Serious: No
  Sender: FDA-Public Use
  Company Number: US-ABBVIE-5688272

PATIENT
  Age: 8 Year
  Sex: Male

DRUGS (1)
  1. LUPRON DEPOT-PED [Suspect]
     Active Substance: LEUPROLIDE ACETATE
     Indication: Product used for unknown indication
     Route: 065

REACTIONS (5)
  - Precocious puberty [Unknown]
  - Dysphonia [Not Recovered/Not Resolved]
  - Laryngeal hypertrophy [Not Recovered/Not Resolved]
  - Insomnia [Unknown]
  - Hair growth abnormal [Not Recovered/Not Resolved]
